FAERS Safety Report 7997005-0 (Version None)
Quarter: 2011Q4

REPORT INFORMATION
  Report Type: 
  Country: None (occurrence: None)
  Receive Date: 20111221
  Receipt Date: 20111220
  Transmission Date: 20120403
  Serious: Yes (Death, Hospitalization, Other)
  Sender: FDA-Public Use
  Company Number: US-AMGEN-USASP2011018290

PATIENT
  Age: 68 Year
  Sex: Male

DRUGS (8)
  1. CORTICOSTEROIDS [Concomitant]
     Indication: IDIOPATHIC THROMBOCYTOPENIC PURPURA
  2. DANAZOL [Concomitant]
     Indication: IDIOPATHIC THROMBOCYTOPENIC PURPURA
  3. AMIODARONE HCL [Concomitant]
  4. NPLATE [Suspect]
     Indication: PANCYTOPENIA
  5. PREDNISONE TAB [Concomitant]
     Dosage: 40 MG, QD
  6. NPLATE [Suspect]
     Indication: IDIOPATHIC THROMBOCYTOPENIC PURPURA
     Dosage: 10 MUG/KG, UNK
     Dates: start: 20110111, end: 20110407
  7. METOPROLOL TARTRATE [Concomitant]
  8. EPOGEN [Concomitant]
     Dosage: 80000 UNIT, QWK

REACTIONS (8)
  - PANNICULITIS [None]
  - RASH GENERALISED [None]
  - RESPIRATORY TRACT INFECTION [None]
  - RASH MACULAR [None]
  - DYSPNOEA [None]
  - DEATH [None]
  - ASTHENIA [None]
  - THERAPEUTIC RESPONSE DECREASED [None]
